FAERS Safety Report 7216255-4 (Version None)
Quarter: 2011Q1

REPORT INFORMATION
  Report Type: 
  Country: None (occurrence: None)
  Receive Date: 20110107
  Receipt Date: 20110104
  Transmission Date: 20110831
  Serious: Yes (Other)
  Sender: FDA-Public Use
  Company Number: US-BAYER-2011-001650

PATIENT
  Sex: Female

DRUGS (1)
  1. OCELLA [Suspect]
     Indication: PRODUCT USED FOR UNKNOWN INDICATION
     Dosage: UNK
     Route: 048
     Dates: start: 20081001, end: 20090101

REACTIONS (4)
  - HEADACHE [None]
  - SUPERIOR SAGITTAL SINUS THROMBOSIS [None]
  - ANXIETY [None]
  - PAPILLOEDEMA [None]
